FAERS Safety Report 5824144-2 (Version None)
Quarter: 2008Q3

REPORT INFORMATION
  Report Type: 
  Country: None (occurrence: None)
  Receive Date: 20080728
  Receipt Date: 20080715
  Transmission Date: 20090109
  Serious: Yes (Other)
  Sender: FDA-Public Use
  Company Number: US-ROCHE-486438

PATIENT
  Sex: Male

DRUGS (3)
  1. ROFERON-A [Suspect]
     Indication: MACULAR DEGENERATION
     Dosage: FORM REPORTED AS: SUBCUTANEOUS INJECTION, DOSE REPORTED AS: 6 MIU.
     Route: 058
     Dates: start: 19910101
  2. LOPRESSOR [Concomitant]
  3. ZOCOR [Concomitant]

REACTIONS (4)
  - CARDIAC OPERATION [None]
  - INFLUENZA LIKE ILLNESS [None]
  - MACULAR DEGENERATION [None]
  - RETINAL HAEMORRHAGE [None]
